FAERS Safety Report 4429272-4 (Version None)
Quarter: 2004Q3

REPORT INFORMATION
  Report Type: 
  Country: None (occurrence: None)
  Receive Date: 20040819
  Receipt Date: 20030703
  Transmission Date: 20050211
  Serious: Yes (Hospitalization, Other)
  Sender: FDA-Public Use
  Company Number: PHHO2003RU08453

PATIENT
  Age: 65 Year
  Sex: Female
  Weight: 63 kg

DRUGS (18)
  1. RIBOXIN [Concomitant]
     Dates: start: 20030602, end: 20030611
  2. VINPOCETINE [Concomitant]
     Dates: start: 20030531, end: 20030625
  3. RELADORM [Concomitant]
     Dates: start: 20030530, end: 20030623
  4. FAMOTIDINE [Concomitant]
     Dates: start: 20030531, end: 20030628
  5. DUPHALAC [Concomitant]
     Dates: start: 20030605, end: 20030615
  6. PARIET [Concomitant]
     Dates: start: 20030424, end: 20030709
  7. RANITIDINE [Concomitant]
     Dosage: 300 MG, UNK
     Dates: start: 20030624, end: 20030820
  8. PHENAZEPAM [Concomitant]
     Dates: start: 20030531, end: 20030623
  9. L-THYROXIN [Concomitant]
     Dosage: 100 MG, UNK
     Dates: start: 20030727, end: 20031118
  10. L-THYROXIN [Concomitant]
     Dosage: 150 MG, UNK
     Dates: start: 20031118, end: 20040315
  11. L-THYROXIN [Concomitant]
     Dosage: 100 MG, UNK
     Dates: start: 20040315
  12. NORVASC [Concomitant]
     Dosage: 5 MG, UNK
     Dates: start: 20030531, end: 20030630
  13. CAVINTON [Concomitant]
     Dates: start: 20030602, end: 20030611
  14. ADELPHAN [Concomitant]
     Dates: start: 20030829
  15. ASPIRIN [Concomitant]
  16. ZOLEDRONATE VS PLACEBO [Suspect]
     Indication: OSTEOPOROSIS POSTMENOPAUSAL
     Dosage: DOUBLE BLIND
     Route: 042
     Dates: start: 20030214
  17. CALCIUM [Concomitant]
     Indication: OSTEOPOROSIS POSTMENOPAUSAL
  18. VITAMIN D [Concomitant]
     Indication: OSTEOPOROSIS POSTMENOPAUSAL

REACTIONS (5)
  - DIZZINESS [None]
  - HEADACHE [None]
  - HYPOTENSION [None]
  - PAPILLARY THYROID CANCER [None]
  - THYROIDECTOMY [None]
